FAERS Safety Report 14319702 (Version 1)
Quarter: 2017Q4

REPORT INFORMATION
  Report Type: Report from Study
  Country: CA (occurrence: CA)
  Receive Date: 20171222
  Receipt Date: 20171222
  Transmission Date: 20180321
  Serious: Yes (Hospitalization)
  Sender: FDA-Public Use
  Company Number: CA-OTSUKA-2017_014154

PATIENT
  Age: 49 Year
  Sex: Female

DRUGS (1)
  1. ARIPIPRAZOLE. [Suspect]
     Active Substance: ARIPIPRAZOLE
     Indication: SCHIZOPHRENIA
     Dosage: 400 MG, QM
     Route: 030
     Dates: start: 20170129

REACTIONS (4)
  - Personality disorder [Unknown]
  - Mood altered [Unknown]
  - Hospitalisation [Unknown]
  - Insomnia [Unknown]

NARRATIVE: CASE EVENT DATE: 20171211
